FAERS Safety Report 9437131 (Version 2)
Quarter: 2013Q3

REPORT INFORMATION
  Report Type: Spontaneous
  Country: FR (occurrence: FR)
  Receive Date: 20130802
  Receipt Date: 20130819
  Transmission Date: 20140515
  Serious: No
  Sender: FDA-Public Use
  Company Number: FR-JNJFOC-20130716637

PATIENT
  Sex: Male

DRUGS (9)
  1. DUROGESIC [Suspect]
     Indication: PRODUCT USED FOR UNKNOWN INDICATION
     Route: 062
     Dates: start: 201307
  2. LEVOTHYROXINE [Concomitant]
     Route: 048
  3. SUTENT [Concomitant]
     Route: 048
     Dates: start: 20130122
  4. VALSARTAN [Concomitant]
     Dosage: 80/12.5
     Route: 048
  5. ALPRAZOLAM [Concomitant]
     Route: 048
  6. ZOLPIDEM [Concomitant]
     Route: 048
  7. PANTOPRAZOLE [Concomitant]
     Route: 048
  8. CRESTOR [Concomitant]
     Route: 048
  9. TRAMADOL APAP [Concomitant]
     Dosage: 3 TABLETS
     Route: 048

REACTIONS (4)
  - Wrong technique in drug usage process [Unknown]
  - Product quality issue [Unknown]
  - Overdose [Unknown]
  - Drug dose omission [Unknown]
